FAERS Safety Report 6142271-X (Version None)
Quarter: 2009Q2

REPORT INFORMATION
  Report Type: 
  Country: None (occurrence: None)
  Receive Date: 20090403
  Receipt Date: 20090330
  Transmission Date: 20091009
  Serious: Yes (Hospitalization, Disabling)
  Sender: FDA-Public Use
  Company Number: BR-ASTRAZENECA-2009UW08111

PATIENT
  Age: 82 Year
  Sex: Female
  Weight: 44 kg

DRUGS (5)
  1. SEROQUEL [Suspect]
     Indication: RESTLESSNESS
     Route: 048
     Dates: start: 20080101, end: 20090322
  2. SEROQUEL [Suspect]
     Route: 048
     Dates: start: 20090323
  3. MEMANTINE HCL [Concomitant]
     Indication: DEMENTIA ALZHEIMER'S TYPE
     Route: 048
     Dates: start: 20080101
  4. HYDROCHLOROTHIAZIDE [Concomitant]
     Indication: HYPERTENSION
     Route: 048
     Dates: start: 20080101
  5. DIPIRONE [Concomitant]
     Indication: HEADACHE
     Route: 048
     Dates: start: 20060101

REACTIONS (6)
  - AGGRESSION [None]
  - BALANCE DISORDER [None]
  - BLINDNESS [None]
  - CEREBROVASCULAR ACCIDENT [None]
  - COORDINATION ABNORMAL [None]
  - SOMNOLENCE [None]
